FAERS Safety Report 14821481 (Version 3)
Quarter: 2022Q1

REPORT INFORMATION
  Report Type: Spontaneous
  Country: ES (occurrence: ES)
  Receive Date: 20180427
  Receipt Date: 20220308
  Transmission Date: 20220424
  Serious: Yes (Hospitalization)
  Sender: FDA-Public Use
  Company Number: ES-AUROBINDO-AUR-APL-2018-022267

PATIENT
  Age: 79 Year
  Sex: Female

DRUGS (7)
  1. LEVOFLOXACIN [Suspect]
     Active Substance: LEVOFLOXACIN
     Indication: Pleural effusion
     Dosage: UNK
     Route: 065
     Dates: start: 20170602, end: 20170626
  2. DULOXETINE [Suspect]
     Active Substance: DULOXETINE
     Indication: Adjustment disorder
     Dosage: UNK
     Route: 048
     Dates: start: 20170613, end: 20170625
  3. BEMIPARIN [Suspect]
     Active Substance: BEMIPARIN
     Indication: Prophylaxis
     Dosage: 3500 INTERNATIONAL UNIT, ONCE A DAY
     Route: 058
     Dates: start: 20170622
  4. CLINDAMYCIN [Suspect]
     Active Substance: CLINDAMYCIN
     Indication: Product used for unknown indication
     Dosage: 300 MILLIGRAM, 3 TIMES A DAY
     Route: 048
     Dates: start: 20170609
  5. HALOPERIDOL [Suspect]
     Active Substance: HALOPERIDOL
     Indication: Product used for unknown indication
     Dosage: 10 [DRP], ONCE A DAY
     Route: 048
     Dates: start: 20170613
  6. METOCLOPRAMIDE [Suspect]
     Active Substance: METOCLOPRAMIDE
     Indication: Vomiting
     Dosage: 10 MILLIGRAM
     Route: 048
     Dates: start: 20170517
  7. NALOXONE HYDROCHLORIDE\OXYCODONE HYDROCHLORIDE [Suspect]
     Active Substance: NALOXONE HYDROCHLORIDE\OXYCODONE HYDROCHLORIDE
     Indication: Cauda equina syndrome
     Dosage: 1 DOSAGE FORM, TWO TIMES A DAY
     Route: 048
     Dates: start: 20170613

REACTIONS (2)
  - Rash maculo-papular [Recovered/Resolved]
  - Pruritus [Recovered/Resolved]

NARRATIVE: CASE EVENT DATE: 20170622
